FAERS Safety Report 8213496-4 (Version None)
Quarter: 2012Q1

REPORT INFORMATION
  Report Type: 
  Country: None (occurrence: None)
  Receive Date: 20120315
  Receipt Date: 20120313
  Transmission Date: 20120608
  Serious: Yes (Hospitalization)
  Sender: FDA-Public Use
  Company Number: US-MERCK-1201USA01084

PATIENT
  Age: 65 Year
  Sex: Female

DRUGS (11)
  1. VITAMINS (UNSPECIFIED) [Concomitant]
     Route: 065
     Dates: start: 19970101
  2. PROCARDIA [Concomitant]
     Route: 065
     Dates: start: 19810101
  3. ALLOPURINOL [Concomitant]
     Route: 065
     Dates: start: 19800101
  4. SPIRIVA [Concomitant]
     Route: 065
     Dates: start: 20070101
  5. ZOCOR [Concomitant]
     Route: 048
     Dates: start: 19810101
  6. FOSAMAX [Suspect]
     Indication: OSTEOPOROSIS
     Route: 048
     Dates: start: 20020101, end: 20100601
  7. ALENDRONATE SODIUM [Suspect]
     Indication: OSTEOPOROSIS
     Route: 048
     Dates: start: 20100616, end: 20101201
  8. TOPROL-XL [Concomitant]
     Route: 065
     Dates: start: 19810101
  9. FERREX [Concomitant]
     Route: 065
     Dates: start: 20010101
  10. FAMOTIDINE [Concomitant]
     Route: 048
     Dates: start: 19810101
  11. ADVAIR DISKUS 100/50 [Concomitant]
     Route: 065
     Dates: start: 20070101

REACTIONS (4)
  - DIVERTICULUM [None]
  - FEMUR FRACTURE [None]
  - BLOOD CHOLESTEROL INCREASED [None]
  - ARTHROPATHY [None]
